FAERS Safety Report 8321342-3 (Version None)
Quarter: 2012Q2

REPORT INFORMATION
  Report Type: 
  Country: None (occurrence: None)
  Receive Date: 20120430
  Receipt Date: 20120423
  Transmission Date: 20120825
  Serious: Yes (Hospitalization)
  Sender: FDA-Public Use
  Company Number: US-ACTELION-A-NJ2011-50448

PATIENT

DRUGS (14)
  1. TRACLEER [Suspect]
     Indication: PULMONARY ARTERIAL HYPERTENSION
     Dosage: UNK
     Route: 048
     Dates: start: 20050823
  2. ZETIA [Concomitant]
  3. CRESTOR [Concomitant]
  4. ISOSORBIDE DINITRATE [Concomitant]
  5. METOPROLOL TARTRATE [Concomitant]
  6. XOPENEX [Concomitant]
  7. POTASSIUM CHLORIDE [Concomitant]
  8. DEXLANSOPRAZOLE [Concomitant]
  9. SPIRIVA [Concomitant]
  10. LASIX [Concomitant]
  11. VENTAVIS [Suspect]
     Indication: PULMONARY ARTERIAL HYPERTENSION
     Dosage: UNK
     Route: 055
     Dates: start: 20060426
  12. OXYGEN [Concomitant]
  13. KLONOPIN [Concomitant]
  14. SERTRALINE HYDROCHLORIDE [Concomitant]

REACTIONS (8)
  - PARAESTHESIA [None]
  - CARDIAC FAILURE CONGESTIVE [None]
  - BLOOD MAGNESIUM DECREASED [None]
  - CHEST PAIN [None]
  - DYSPNOEA [None]
  - FLUID OVERLOAD [None]
  - HYPOAESTHESIA [None]
  - BLOOD POTASSIUM DECREASED [None]
